FAERS Safety Report 6492578-1 (Version None)
Quarter: 2009Q4

REPORT INFORMATION
  Report Type: 
  Country: None (occurrence: None)
  Receive Date: 20091211
  Receipt Date: 20091211
  Transmission Date: 20100525
  Serious: Yes (Life-Threatening, Other)
  Sender: FDA-Public Use
  Company Number: None

PATIENT
  Age: 44 Year
  Sex: Male
  Weight: 90 kg

DRUGS (1)
  1. TAMIFLU [Suspect]
     Indication: H1N1 INFLUENZA
     Dosage: TAMIFLU 75 MG BID X 5D PO
     Route: 048
     Dates: start: 20091116, end: 20091121

REACTIONS (3)
  - HALLUCINATIONS, MIXED [None]
  - PSYCHOTIC DISORDER [None]
  - SUICIDAL IDEATION [None]
